FAERS Safety Report 5817062-7 (Version None)
Quarter: 2008Q3

REPORT INFORMATION
  Report Type: 
  Country: None (occurrence: None)
  Receive Date: 20080717
  Receipt Date: 20080710
  Transmission Date: 20090109
  Serious: Yes (Hospitalization)
  Sender: FDA-Public Use
  Company Number: 2008BI017507

PATIENT
  Age: 53 Year
  Sex: Female

DRUGS (1)
  1. AVONEX [Suspect]
     Indication: MULTIPLE SCLEROSIS
     Dosage: 30 UG; QW; IM; IM
     Route: 030
     Dates: start: 20040430

REACTIONS (3)
  - MENISCUS LESION [None]
  - MUSCLE SPASMS [None]
  - SOFT TISSUE INFLAMMATION [None]
